FAERS Safety Report 9734242 (Version 5)
Quarter: 2014Q2

REPORT INFORMATION
  Report Type: Report from Study
  Country: AU (occurrence: AU)
  Receive Date: 20131205
  Receipt Date: 20140613
  Transmission Date: 20141212
  Serious: Yes (Hospitalization)
  Sender: FDA-Public Use
  Company Number: AU-ONYX-2013-1678

PATIENT
  Age: 83 Year
  Sex: Female

DRUGS (17)
  1. CARFILZOMIB [Suspect]
     Indication: PLASMA CELL MYELOMA
     Route: 042
     Dates: start: 20130513, end: 20130514
  2. CARFILZOMIB [Suspect]
     Route: 042
     Dates: start: 20130520, end: 20130528
  3. CARFILZOMIB [Suspect]
     Route: 042
     Dates: start: 20130611, end: 20131015
  4. DEXAMETHASONE [Suspect]
     Indication: PLASMA CELL MYELOMA
     Route: 048
     Dates: start: 20130513, end: 20131001
  5. AVAPRO [Concomitant]
     Indication: HYPERTENSION
     Route: 048
     Dates: start: 2000, end: 20131015
  6. ASPIRIN [Concomitant]
     Indication: THROMBOSIS PROPHYLAXIS
     Route: 048
     Dates: start: 20100331, end: 20131014
  7. COD LIVER OIL [Concomitant]
     Indication: NUTRITIONAL SUPPLEMENTATION
     Route: 048
     Dates: start: 20111116, end: 20131015
  8. DUROLAX [Concomitant]
     Indication: CONSTIPATION
     Route: 048
     Dates: start: 201305
  9. DIFLUCAN [Concomitant]
     Indication: ANTIFUNGAL PROPHYLAXIS
     Route: 048
     Dates: start: 20130513
  10. OMEPRAZOLE [Concomitant]
     Indication: PROPHYLAXIS
     Route: 048
     Dates: start: 20130513, end: 20131015
  11. VALACICLOVIR [Concomitant]
     Indication: ANTIVIRAL PROPHYLAXIS
     Route: 048
     Dates: start: 20130513
  12. MOVICOL [Concomitant]
     Indication: CONSTIPATION
     Route: 048
     Dates: start: 20130621
  13. AREDIA [Concomitant]
     Indication: PROPHYLAXIS
     Route: 042
     Dates: start: 20131001, end: 20131001
  14. CEPHALEXIN [Concomitant]
     Indication: SOFT TISSUE INFECTION
     Route: 048
     Dates: start: 20131008, end: 20131015
  15. FENTANYL [Concomitant]
     Indication: PREMEDICATION
     Route: 042
     Dates: start: 20130925, end: 20130925
  16. MIDAZOLAM [Concomitant]
     Indication: PREMEDICATION
     Route: 042
     Dates: start: 20130925, end: 20130925
  17. CLEARLAX [Concomitant]
     Indication: COLONOSCOPY
     Route: 048
     Dates: start: 20131010, end: 20131013

REACTIONS (2)
  - Pyrexia [Recovered/Resolved]
  - Cardiomyopathy [Recovering/Resolving]
